FAERS Safety Report 4881902-9 (Version None)
Quarter: 2006Q1

REPORT INFORMATION
  Report Type: 
  Country: None (occurrence: None)
  Receive Date: 20060112
  Receipt Date: 20060103
  Transmission Date: 20060701
  Serious: Yes (Death)
  Sender: FDA-Public Use
  Company Number: AE-1105-254

PATIENT
  Age: 38 Year
  Sex: Male

DRUGS (1)
  1. LIDODERM [Suspect]
     Indication: NECK PAIN
     Dosage: 1 PATCH A DAY

REACTIONS (1)
  - MYOCARDIAL INFARCTION [None]
